FAERS Safety Report 18303159 (Version 3)
Quarter: 2021Q3

REPORT INFORMATION
  Report Type: Spontaneous
  Country: US (occurrence: US)
  Receive Date: 20200923
  Receipt Date: 20210827
  Transmission Date: 20211014
  Serious: Yes (Disabling, Other)
  Sender: FDA-Public Use
  Company Number: US-SA-2020SA255327

PATIENT
  Age: 56 Year
  Sex: Male

DRUGS (2)
  1. ZANTAC [Suspect]
     Active Substance: RANITIDINE HYDROCHLORIDE
     Indication: GASTROOESOPHAGEAL REFLUX DISEASE
     Dosage: 150 MG, QD
     Dates: start: 200804, end: 201512
  2. RANITIDINE HYDROCHLORIDE. [Suspect]
     Active Substance: RANITIDINE HYDROCHLORIDE
     Indication: GASTROOESOPHAGEAL REFLUX DISEASE

REACTIONS (9)
  - Neoplasm malignant [Unknown]
  - Pancreatic carcinoma [Unknown]
  - Prostate cancer [Unknown]
  - Pain [Unknown]
  - Injury [Unknown]
  - Anhedonia [Unknown]
  - Anxiety [Unknown]
  - Emotional distress [Unknown]
  - Disability [Unknown]

NARRATIVE: CASE EVENT DATE: 201503
